FAERS Safety Report 5492176-2 (Version None)
Quarter: 2007Q4

REPORT INFORMATION
  Report Type: 
  Country: None (occurrence: None)
  Receive Date: 20071022
  Receipt Date: 20071012
  Transmission Date: 20080405
  Serious: Yes (Hospitalization)
  Sender: FDA-Public Use
  Company Number: US-ROCHE-513372

PATIENT
  Age: 79 Year
  Sex: Male
  Weight: 108 kg

DRUGS (7)
  1. CAPECITABINE [Suspect]
     Dosage: PER PROTOCOL: 850 MG/M2 BID DAYS 1-14 OF 21 IT WAS REPORTED THAT THE STUDY DRUG WAS TO BE STOPPED A+
     Route: 065
  2. OXALIPLATIN [Suspect]
     Dosage: FREQUENCY UNSPECIFIED ACC. TO PROTOCOL TO BE GIVEN ON DAY 1. IT WAS REPORTED THAT THE STUDY DRUG WA+
     Route: 042
     Dates: start: 20070810
  3. CETUXIMAB [Suspect]
     Dosage: AS PER PROTOCOL: THE FIRST DOSE AT 400 MG/M2 AND SUBSEQUENT WEEKLY DOSES AT 250 MG/M2. IT WAS REPOR+
     Route: 042
     Dates: start: 20070810
  4. SPIRONOLACTONE [Concomitant]
  5. LISINOPRIL [Concomitant]
  6. PROCHLORPERAZINE [Concomitant]
  7. THORAZINE [Concomitant]

REACTIONS (6)
  - DIARRHOEA [None]
  - HYPERKALAEMIA [None]
  - METABOLIC ACIDOSIS [None]
  - MUCOSAL INFLAMMATION [None]
  - PANCREATITIS [None]
  - URINARY TRACT INFECTION [None]
